FAERS Safety Report 4583980-3 (Version None)
Quarter: 2005Q1

REPORT INFORMATION
  Report Type: 
  Country: None (occurrence: None)
  Receive Date: 20050216
  Receipt Date: 20050210
  Transmission Date: 20050727
  Serious: Yes (Death, Other)
  Sender: FDA-Public Use
  Company Number: PHBS2005US02308

PATIENT
  Age: 67 Year
  Sex: Male

DRUGS (6)
  1. BACLOFEN [Suspect]
     Indication: HICCUPS
     Route: 065
  2. CHLORPROMAZINE [Concomitant]
     Indication: HICCUPS
  3. METOCLOPRAMIDE [Concomitant]
  4. SENNA [Concomitant]
  5. HYDROMORPHONE [Concomitant]
  6. LIDOCAINE [Concomitant]

REACTIONS (12)
  - ABDOMINAL MASS [None]
  - CONFUSIONAL STATE [None]
  - DEATH [None]
  - DRUG INEFFECTIVE [None]
  - ERUCTATION [None]
  - FAECALOMA [None]
  - FAECES HARD [None]
  - HAEMATEMESIS [None]
  - INSOMNIA [None]
  - NAUSEA [None]
  - SMALL INTESTINAL OBSTRUCTION [None]
  - VOMITING [None]
